FAERS Safety Report 7179768-X (Version None)
Quarter: 2010Q4

REPORT INFORMATION
  Report Type: 
  Country: None (occurrence: None)
  Receive Date: 20101221
  Receipt Date: 20100109
  Transmission Date: 20110411
  Serious: No
  Sender: FDA-Public Use
  Company Number: US-BRISTOL-MYERS SQUIBB COMPANY-14932875

PATIENT
  Age: 75 Year
  Sex: Female

DRUGS (2)
  1. QUESTRAN [Suspect]
     Indication: GASTROINTESTINAL DISORDER
     Dosage: 1DF-1SCOOP
     Route: 048
     Dates: start: 20090501
  2. SYNTHROID [Concomitant]
     Dosage: X 5 YEARS

REACTIONS (2)
  - MUSCLE ATROPHY [None]
  - MUSCLE SPASMS [None]
